FAERS Safety Report 7414451-4 (Version None)
Quarter: 2011Q2

REPORT INFORMATION
  Report Type: 
  Country: None (occurrence: None)
  Receive Date: 20110414
  Receipt Date: 20101117
  Transmission Date: 20111010
  Serious: Yes (Hospitalization, Other)
  Sender: FDA-Public Use
  Company Number: US-BAYER-200942579NA

PATIENT
  Age: 24 Year
  Sex: Female
  Weight: 59.091 kg

DRUGS (12)
  1. CEFTIN [Concomitant]
  2. ACETAMINOPHEN [Concomitant]
     Dosage: AS NEEDED
  3. ZOLPIDEM TARTRATE [Concomitant]
     Dosage: 10 MG, UNK
     Route: 048
  4. YASMIN [Suspect]
     Indication: CONTRACEPTION
  5. PEPCID [Concomitant]
  6. METRONIDAZOLE [Concomitant]
     Dosage: 500 MG, UNK
     Route: 048
  7. YAZ [Suspect]
     Indication: ACNE
  8. YASMIN [Suspect]
     Indication: ACNE
  9. PREDNISONE [Concomitant]
  10. PREDNISONE [Concomitant]
  11. YAZ [Suspect]
     Indication: ORAL CONTRACEPTION
     Route: 048
     Dates: start: 20071001, end: 20081206
  12. COUMADIN [Concomitant]
     Dosage: 5 MG (DAILY DOSE), ,

REACTIONS (7)
  - PULMONARY EMBOLISM [None]
  - DYSPNOEA [None]
  - RALES [None]
  - PLEURISY [None]
  - CHEST DISCOMFORT [None]
  - PALPITATIONS [None]
  - PLEURITIC PAIN [None]
